FAERS Safety Report 22387727 (Version 1)
Quarter: 2023Q2

REPORT INFORMATION
  Report Type: Spontaneous
  Country: US (occurrence: US)
  Receive Date: 20230531
  Receipt Date: 20230531
  Transmission Date: 20230721
  Serious: Yes (Hospitalization)
  Sender: FDA-Public Use
  Company Number: US-drreddys-LIT/USA/23/0165896

PATIENT
  Age: 48 Year
  Sex: Female

DRUGS (4)
  1. METOPROLOL SUCCINATE [Suspect]
     Active Substance: METOPROLOL SUCCINATE
     Indication: Product used for unknown indication
     Dosage: 500MG EXTENDED-RELEASE
  2. HYDROXYZINE HYDROCHLORIDE [Suspect]
     Active Substance: HYDROXYZINE HYDROCHLORIDE
     Indication: Product used for unknown indication
  3. RIVAROXABAN [Suspect]
     Active Substance: RIVAROXABAN
     Indication: Product used for unknown indication
  4. POTASSIUM CHLORIDE [Suspect]
     Active Substance: POTASSIUM CHLORIDE
     Indication: Product used for unknown indication
     Dosage: 1400 MEQ EXTENDED-RELEASE
     Route: 048

REACTIONS (6)
  - Agitation [Recovered/Resolved]
  - Coagulopathy [Recovered/Resolved]
  - Hyperkalaemia [Recovered/Resolved]
  - Cardiac arrest [Recovered/Resolved]
  - Hypotension [Recovered/Resolved]
  - Intentional product misuse [Unknown]
